FAERS Safety Report 9594924 (Version 2)
Quarter: 2013Q4

REPORT INFORMATION
  Report Type: Spontaneous
  Country: US (occurrence: US)
  Receive Date: 20131004
  Receipt Date: 20131004
  Transmission Date: 20140711
  Serious: No
  Sender: FDA-Public Use
  Company Number: US-PURDUE-USA-2012-0091085

PATIENT
  Sex: Female

DRUGS (5)
  1. BUTRANS [Suspect]
     Indication: PAIN
     Dosage: 10 MCG/HR, UNK
     Route: 062
     Dates: start: 20120630
  2. BUTRANS [Suspect]
     Indication: FIBROMYALGIA
     Dosage: 5 MCG/HR, UNK
     Route: 062
     Dates: start: 20120430, end: 20120630
  3. BUTRANS [Suspect]
     Indication: RHEUMATOID ARTHRITIS
  4. BOTOX [Concomitant]
     Indication: MIGRAINE
     Dosage: UNK UNK, PRN
     Route: 023
     Dates: start: 20120719, end: 20120719
  5. ZITHROMAX Z-PACK [Concomitant]
     Indication: SINUSITIS
     Dosage: 250 MG, DAILY X 10 DAYS
     Route: 048
     Dates: start: 20120720, end: 20120730

REACTIONS (6)
  - Inadequate analgesia [Recovered/Resolved]
  - Drug effect decreased [Not Recovered/Not Resolved]
  - Therapeutic response delayed [Not Recovered/Not Resolved]
  - Breakthrough pain [Unknown]
  - Hiccups [Not Recovered/Not Resolved]
  - Swelling face [Recovered/Resolved]
